FAERS Safety Report 5313232-5 (Version None)
Quarter: 2007Q2

REPORT INFORMATION
  Report Type: 
  Country: None (occurrence: None)
  Receive Date: 20070501
  Receipt Date: 20070419
  Transmission Date: 20071010
  Serious: Yes (Hospitalization, Other)
  Sender: FDA-Public Use
  Company Number: PHEH2007US06014

PATIENT
  Sex: Male

DRUGS (2)
  1. COUMADIN [Concomitant]
     Dates: start: 20070411, end: 20070413
  2. GLEEVEC [Suspect]
     Indication: CHRONIC MYELOID LEUKAEMIA
     Dosage: 400 MG, QD
     Route: 048
     Dates: start: 20060401

REACTIONS (5)
  - GOUT [None]
  - KNEE ARTHROPLASTY [None]
  - NAUSEA [None]
  - PAIN [None]
  - VOMITING [None]
